FAERS Safety Report 25064240 (Version 1)
Quarter: 2025Q1

REPORT INFORMATION
  Report Type: Spontaneous
  Country: CA (occurrence: CA)
  Receive Date: 20250311
  Receipt Date: 20250311
  Transmission Date: 20250408
  Serious: Yes (Hospitalization, Other)
  Sender: PFIZER
  Company Number: CA-PFIZER INC-202500053209

PATIENT
  Age: 64 Year
  Sex: Female

DRUGS (6)
  1. TOFACITINIB CITRATE [Suspect]
     Active Substance: TOFACITINIB CITRATE
     Indication: Rheumatoid arthritis
  2. GABAPENTIN [Concomitant]
     Active Substance: GABAPENTIN
  3. LEFLUNOMIDE [Concomitant]
     Active Substance: LEFLUNOMIDE
  4. METHOTREXATE [Concomitant]
     Active Substance: METHOTREXATE
     Route: 037
  5. MISOPROSTOL [Concomitant]
     Active Substance: MISOPROSTOL
  6. SULFASALAZINE [Concomitant]
     Active Substance: SULFASALAZINE

REACTIONS (1)
  - Musculoskeletal stiffness [Not Recovered/Not Resolved]
